FAERS Safety Report 6064028-0 (Version None)
Quarter: 2009Q1

REPORT INFORMATION
  Report Type: 
  Country: None (occurrence: None)
  Receive Date: 20090130
  Receipt Date: 20090122
  Transmission Date: 20090719
  Serious: Yes (Hospitalization)
  Sender: FDA-Public Use
  Company Number: CIP09000142

PATIENT
  Age: 72 Year
  Sex: Female

DRUGS (5)
  1. ACTONEL [Suspect]
     Dosage: 35 MG ONCE WEEKLY, ORAL
     Route: 048
     Dates: start: 20040101, end: 20080922
  2. THYROID TAB [Concomitant]
  3. VITAMINS NOS [Concomitant]
  4. METHOTREXATE [Concomitant]
  5. ARTHROTEC /00372302/ (DICLOFENAC SODIUM) [Concomitant]

REACTIONS (5)
  - ABDOMINAL PAIN [None]
  - DIARRHOEA [None]
  - FREQUENT BOWEL MOVEMENTS [None]
  - VOLVULUS [None]
  - VOMITING [None]
